FAERS Safety Report 16536746 (Version 2)
Quarter: 2019Q3

REPORT INFORMATION
  Report Type: Spontaneous
  Country: US (occurrence: US)
  Receive Date: 20190706
  Receipt Date: 20190729
  Transmission Date: 20191004
  Serious: No
  Sender: FDA-Public Use
  Company Number: US-009507513-1907USA001447

PATIENT
  Sex: Female

DRUGS (2)
  1. NEXPLANON [Suspect]
     Active Substance: ETONOGESTREL
     Indication: CONTRACEPTION
     Dosage: 1 IMPLANT, FREQUENCY: DAILY
     Route: 059
     Dates: start: 20170125, end: 20190701
  2. NEXPLANON [Suspect]
     Active Substance: ETONOGESTREL
     Dosage: 1 IMPLANT, FREQUENCY: DAILY
     Route: 059
     Dates: start: 20190701

REACTIONS (3)
  - Implant site paraesthesia [Unknown]
  - Implant site pain [Unknown]
  - Discomfort [Unknown]
